FAERS Safety Report 5366847-2 (Version None)
Quarter: 2007Q2

REPORT INFORMATION
  Report Type: 
  Country: None (occurrence: None)
  Receive Date: 20070622
  Receipt Date: 20061227
  Transmission Date: 20071010
  Serious: Yes (Other)
  Sender: FDA-Public Use
  Company Number: US-ASTRAZENECA-2006UW28587

PATIENT
  Sex: Female

DRUGS (1)
  1. RHINOCORT [Suspect]
     Dosage: 2 PUFFS DAILY EACH NOSTRIL
     Route: 045
     Dates: start: 20040101

REACTIONS (1)
  - NASAL SEPTUM PERFORATION [None]
